FAERS Safety Report 5745580-9 (Version None)
Quarter: 2008Q2

REPORT INFORMATION
  Report Type: 
  Country: None (occurrence: None)
  Receive Date: 20080519
  Receipt Date: 20080228
  Transmission Date: 20081010
  Serious: No
  Sender: FDA-Public Use
  Company Number: TPA2008A00264

PATIENT
  Age: 80 Year
  Sex: Male
  Weight: 111.1313 kg

DRUGS (5)
  1. ROZEREM [Suspect]
     Indication: INITIAL INSOMNIA
     Dosage: 8 MG, QHS, PER ORAL
     Route: 048
     Dates: start: 20080225
  2. ROZEREM [Suspect]
     Indication: MIDDLE INSOMNIA
     Dosage: 8 MG, QHS, PER ORAL
     Route: 048
     Dates: start: 20080225
  3. AMBIEN [Suspect]
     Dosage: PER ORAL
     Route: 048
  4. CARDURA [Concomitant]
  5. PRAVACHOL [Concomitant]

REACTIONS (2)
  - FEELING JITTERY [None]
  - POOR QUALITY SLEEP [None]
